FAERS Safety Report 10444586 (Version 2)
Quarter: 2014Q4

REPORT INFORMATION
  Report Type: Spontaneous
  Country: US (occurrence: US)
  Receive Date: 20140910
  Receipt Date: 20141125
  Transmission Date: 20150528
  Serious: Yes (Other)
  Sender: FDA-Public Use
  Company Number: US-BAYER-2014-130334

PATIENT
  Age: 31 Year
  Sex: Female
  Weight: 53.52 kg

DRUGS (4)
  1. MELOXICAM. [Concomitant]
     Active Substance: MELOXICAM
     Dosage: 15 MG, UNK
  2. MIRENA [Suspect]
     Active Substance: LEVONORGESTREL
     Indication: CONTRACEPTION
     Dosage: 20 MCG/24HR, CONT
     Route: 015
     Dates: start: 20071224, end: 20110921
  3. MIRENA [Suspect]
     Active Substance: LEVONORGESTREL
     Indication: CONTRACEPTION
     Dosage: 20 MCG/24HR, CONT
     Route: 015
     Dates: start: 20130328, end: 20130816
  4. METHYLPREDNISOLONE. [Concomitant]
     Active Substance: METHYLPREDNISOLONE
     Dosage: 4 MG, UNK

REACTIONS (17)
  - Abdominal pain [None]
  - Dyspareunia [None]
  - Affective disorder [None]
  - Vaginal haemorrhage [None]
  - Medical device pain [None]
  - Nausea [None]
  - Pain [None]
  - Genital haemorrhage [None]
  - Device dislocation [None]
  - Device issue [None]
  - Dizziness [None]
  - Device defective [None]
  - Injury [None]
  - Abdominal pain lower [None]
  - Pelvic inflammatory disease [None]
  - Emotional distress [None]
  - Medical device discomfort [None]

NARRATIVE: CASE EVENT DATE: 20130328
